FAERS Safety Report 8691336 (Version 2)
Quarter: 2013Q1

REPORT INFORMATION
  Report Type: Spontaneous
  Country: BR (occurrence: BR)
  Receive Date: 20120730
  Receipt Date: 20130122
  Transmission Date: 20140127
  Serious: Yes (Hospitalization)
  Sender: FDA-Public Use
  Company Number: PHHY2012BR056260

PATIENT
  Sex: Female

DRUGS (4)
  1. EXELON PATCH [Suspect]
     Indication: MEMORY IMPAIRMENT
     Dosage: 4.6 MG\24HRS, 9MG/5CM
     Route: 062
  2. OXYBUTYNIN HYDROCHLORIDE [Concomitant]
     Indication: CYSTITIS
     Dosage: 1 DF, 1 TABLET A DAY
     Route: 048
  3. NAPRIX D [Concomitant]
     Indication: HYPERTENSION
     Dosage: 1 DF, 12,5+5MG, 1 TABLET A DAY
     Route: 048
  4. QUETIAPINE [Concomitant]
     Indication: MEMORY IMPAIRMENT
     Dosage: 1 DF, HALF TABLET IN THE MORNING AND HALF TABLET AT NIGHT

REACTIONS (4)
  - Eating disorder [Recovering/Resolving]
  - Malaise [Recovered/Resolved]
  - Cognitive disorder [Recovered/Resolved]
  - Depression [Recovered/Resolved]
